FAERS Safety Report 9631412 (Version 1)
Quarter: 2013Q4

REPORT INFORMATION
  Report Type: Spontaneous
  Country: GB (occurrence: GB)
  Receive Date: 20131018
  Receipt Date: 20131018
  Transmission Date: 20140711
  Serious: Yes (Other)
  Sender: FDA-Public Use
  Company Number: GB-ROCHE-1290457

PATIENT
  Age: 64 Year
  Sex: Female
  Weight: 53 kg

DRUGS (17)
  1. OMALIZUMAB [Suspect]
     Indication: PRODUCT USED FOR UNKNOWN INDICATION
     Route: 058
     Dates: start: 20120920, end: 20130916
  2. AZITHROMYCIN [Concomitant]
  3. CALCICHEW D3 [Concomitant]
  4. CETIRIZINE [Concomitant]
  5. DOXAZOSIN MESILATE [Concomitant]
  6. FLUTICASONE [Concomitant]
  7. HYDROXOCOBALAMIN [Concomitant]
  8. IPRATROPIUM BROMIDE [Concomitant]
  9. LORATADINE [Concomitant]
  10. OMEPRAZOLE [Concomitant]
  11. MONTELUKAST [Concomitant]
  12. PARACETAMOL [Concomitant]
  13. PREDNISOLONE [Concomitant]
  14. RAMIPRIL [Concomitant]
  15. SALBUTAMOL [Concomitant]
  16. SYMBICORT [Concomitant]
  17. TRAMADOL [Concomitant]

REACTIONS (3)
  - Carotid artery disease [Not Recovered/Not Resolved]
  - Transient ischaemic attack [Recovered/Resolved]
  - Somnolence [Recovered/Resolved]
